FAERS Safety Report 25791228 (Version 1)
Quarter: 2025Q3

REPORT INFORMATION
  Report Type: Other
  Country: US (occurrence: US)
  Receive Date: 20250911
  Receipt Date: 20250911
  Transmission Date: 20251021
  Serious: Yes (Hospitalization, Other)
  Sender: APPCO PHARMA LLC
  Company Number: US-Appco Pharma LLC-2184291

PATIENT
  Age: 46 Year
  Sex: Female

DRUGS (4)
  1. SERTRALINE [Suspect]
     Active Substance: SERTRALINE HYDROCHLORIDE
     Indication: Anxiety
  2. AMLODIPINE [Suspect]
     Active Substance: AMLODIPINE BESYLATE
  3. BUSPIRONE [Suspect]
     Active Substance: BUSPIRONE HYDROCHLORIDE
  4. LISINOPRIL [Suspect]
     Active Substance: LISINOPRIL

REACTIONS (5)
  - Intentional product misuse [Unknown]
  - Bradycardia [Unknown]
  - Hypotension [Recovered/Resolved]
  - Syncope [Unknown]
  - Lethargy [Unknown]
